FAERS Safety Report 13003368 (Version 1)
Quarter: 2016Q4

REPORT INFORMATION
  Report Type: Spontaneous
  Country: CH (occurrence: CH)
  Receive Date: 20161206
  Receipt Date: 20161206
  Transmission Date: 20170207
  Serious: Yes (Other)
  Sender: FDA-Public Use
  Company Number: CH-LPDUSPRD-20161095

PATIENT
  Age: 28 Year
  Sex: Female

DRUGS (1)
  1. VENOFER [Suspect]
     Active Substance: IRON SUCROSE
     Dosage: 200 MG, 6 TOTAL
     Route: 041
     Dates: start: 201506

REACTIONS (2)
  - Porphyria non-acute [Unknown]
  - Chromaturia [Unknown]

NARRATIVE: CASE EVENT DATE: 2015
